FAERS Safety Report 6698718-3 (Version None)
Quarter: 2010Q2

REPORT INFORMATION
  Report Type: 
  Country: None (occurrence: None)
  Receive Date: 20100427
  Receipt Date: 20100126
  Transmission Date: 20101027
  Serious: No
  Sender: FDA-Public Use
  Company Number: US-ASTRAZENECA-2010SE03519

PATIENT
  Age: 20262 Day
  Sex: Female
  Weight: 68 kg

DRUGS (2)
  1. ZOMIG [Suspect]
     Indication: MIGRAINE
     Route: 048
     Dates: start: 20100119, end: 20100119
  2. SIMBALTA [Concomitant]

REACTIONS (3)
  - CHEST DISCOMFORT [None]
  - DYSSTASIA [None]
  - PAIN [None]
